FAERS Safety Report 19959341 (Version 2)
Quarter: 2021Q4

REPORT INFORMATION
  Report Type: Spontaneous
  Country: CO (occurrence: CO)
  Receive Date: 20211015
  Receipt Date: 20211028
  Transmission Date: 20220303
  Serious: Yes (Hospitalization, Other)
  Sender: FDA-Public Use
  Company Number: CO-BAYER-2021A230404

PATIENT
  Age: 5 Year
  Sex: Female

DRUGS (3)
  1. GADOBUTROL [Suspect]
     Active Substance: GADOBUTROL
     Indication: Computerised tomogram
     Dosage: 2 ML, ONCE
     Route: 042
     Dates: start: 20210609, end: 20210609
  2. SEVOFLURANE [Concomitant]
     Active Substance: SEVOFLURANE
     Indication: Anaesthesia
  3. DOTAREM [Concomitant]
     Active Substance: GADOTERATE MEGLUMINE

REACTIONS (3)
  - Blindness [Recovered/Resolved]
  - Eyelid oedema [None]
  - Contrast media allergy [None]

NARRATIVE: CASE EVENT DATE: 20210609
